FAERS Safety Report 11922012 (Version 1)
Quarter: 2016Q1

REPORT INFORMATION
  Report Type: Spontaneous
  Country: HU (occurrence: HU)
  Receive Date: 20160115
  Receipt Date: 20160115
  Transmission Date: 20160526
  Serious: Yes (Hospitalization, Other)
  Sender: FDA-Public Use
  Company Number: HU-MYLANLABS-2016M1001863

PATIENT

DRUGS (3)
  1. ADEFOVIR [Concomitant]
     Active Substance: ADEFOVIR
     Indication: CHRONIC HEPATITIS B
     Route: 065
  2. CICLOSPORIN [Suspect]
     Active Substance: CYCLOSPORINE
     Indication: IMMUNOSUPPRESSANT DRUG THERAPY
     Route: 065
  3. MYCOPHENOLATE MOFETIL. [Suspect]
     Active Substance: MYCOPHENOLATE MOFETIL
     Indication: IMMUNOSUPPRESSANT DRUG THERAPY
     Route: 065

REACTIONS (5)
  - Endocarditis [Recovering/Resolving]
  - Chlamydial infection [Recovered/Resolved]
  - Toxicity to various agents [Recovered/Resolved]
  - Chronic kidney disease [Recovering/Resolving]
  - Aphasia [Recovered/Resolved]
